FAERS Safety Report 6190433-8 (Version None)
Quarter: 2009Q2

REPORT INFORMATION
  Report Type: 
  Country: None (occurrence: None)
  Receive Date: 20090514
  Receipt Date: 20090511
  Transmission Date: 20091009
  Serious: Yes (Other)
  Sender: FDA-Public Use
  Company Number: GR-BRISTOL-MYERS SQUIBB COMPANY-14623029

PATIENT
  Age: 53 Year
  Sex: Female

DRUGS (2)
  1. HYDROXYCARBAMIDE [Suspect]
     Indication: THROMBOCYTHAEMIA
  2. ANAGRELIDE HCL [Suspect]
     Indication: THROMBOCYTHAEMIA
     Dosage: 1DF=MEAN DAILY DOSE 250 MG

REACTIONS (2)
  - ERYTHROMELALGIA [None]
  - THERAPEUTIC RESPONSE DECREASED [None]
